FAERS Safety Report 4946485-3 (Version None)
Quarter: 2006Q1

REPORT INFORMATION
  Report Type: 
  Country: None (occurrence: None)
  Receive Date: 20060313
  Receipt Date: 20060303
  Transmission Date: 20060701
  Serious: Yes (Hospitalization, Other)
  Sender: FDA-Public Use
  Company Number: 2006-03-0194

PATIENT
  Age: 42 Year
  Sex: Female

DRUGS (3)
  1. TEMODAR [Suspect]
     Indication: GLIOBLASTOMA MULTIFORME
     Dosage: 140 MG/M^2 ORAL
     Route: 048
     Dates: start: 20060101, end: 20060101
  2. DILANTIN [Suspect]
     Indication: CONVULSION
  3. DILANTIN [Suspect]
     Indication: GLIOBLASTOMA MULTIFORME

REACTIONS (6)
  - ALANINE AMINOTRANSFERASE INCREASED [None]
  - ASPARTATE AMINOTRANSFERASE INCREASED [None]
  - BLOOD ALKALINE PHOSPHATASE INCREASED [None]
  - DRUG INTERACTION POTENTIATION [None]
  - PYREXIA [None]
  - RASH GENERALISED [None]
